FAERS Safety Report 13664021 (Version 1)
Quarter: 2017Q2

REPORT INFORMATION
  Report Type: Spontaneous
  Country: US (occurrence: US)
  Receive Date: 20170618
  Receipt Date: 20170618
  Transmission Date: 20170830
  Serious: Yes (Life-Threatening, Disabling)
  Sender: FDA-Public Use
  Company Number: None

PATIENT
  Age: 32 Year
  Sex: Male
  Weight: 81 kg

DRUGS (5)
  1. LORAZEPAM. [Suspect]
     Active Substance: LORAZEPAM
     Indication: ANXIETY
     Dates: start: 20090101, end: 20170122
  2. TRAZODONE [Concomitant]
     Active Substance: TRAZODONE HYDROCHLORIDE
  3. LORAZEPAM. [Suspect]
     Active Substance: LORAZEPAM
     Indication: INSOMNIA
     Dates: start: 20090101, end: 20170122
  4. TEMAZEPAM. [Suspect]
     Active Substance: TEMAZEPAM
  5. PROMETHAZINE [Concomitant]
     Active Substance: PROMETHAZINE\PROMETHAZINE HYDROCHLORIDE

REACTIONS (30)
  - Formication [None]
  - Panic attack [None]
  - Insomnia [None]
  - Anxiety [None]
  - Dyspnoea [None]
  - Paraesthesia [None]
  - Muscle twitching [None]
  - Drug tolerance increased [None]
  - Malaise [None]
  - Skin burning sensation [None]
  - Restless legs syndrome [None]
  - Seizure [None]
  - Myalgia [None]
  - Hyperhidrosis [None]
  - Delusion [None]
  - Sleep paralysis [None]
  - Feeling of body temperature change [None]
  - Personal relationship issue [None]
  - Withdrawal syndrome [None]
  - Psychotic disorder [None]
  - Suicidal ideation [None]
  - Hypoaesthesia [None]
  - Hallucination, auditory [None]
  - Tremor [None]
  - Diplopia [None]
  - Halo vision [None]
  - Akathisia [None]
  - Loss of employment [None]
  - Drug ineffective [None]
  - Abasia [None]

NARRATIVE: CASE EVENT DATE: 20161030
